FAERS Safety Report 8227834-X (Version None)
Quarter: 2012Q1

REPORT INFORMATION
  Report Type: 
  Country: None (occurrence: None)
  Receive Date: 20120322
  Receipt Date: 20120314
  Transmission Date: 20120608
  Serious: Yes (Hospitalization, Other)
  Sender: FDA-Public Use
  Company Number: US-BAYER-2012-011579

PATIENT
  Age: 45 Year
  Sex: Female

DRUGS (4)
  1. YASMIN [Suspect]
     Dosage: UNK
     Dates: start: 20070601, end: 20100201
  2. YAZ [Suspect]
     Dosage: UNK
     Dates: start: 20070601, end: 20100201
  3. PROMETHAZINE [Concomitant]
     Indication: NAUSEA
     Dosage: UNK
     Dates: start: 20071130
  4. PROMETHAZINE [Concomitant]
     Indication: VOMITING

REACTIONS (7)
  - ANXIETY [None]
  - CHOLECYSTITIS ACUTE [None]
  - GALLBLADDER INJURY [None]
  - PAIN [None]
  - GENERAL PHYSICAL HEALTH DETERIORATION [None]
  - INJURY [None]
  - EMOTIONAL DISTRESS [None]
